FAERS Safety Report 25089273 (Version 3)
Quarter: 2025Q1

REPORT INFORMATION
  Report Type: Report from Study
  Country: CO (occurrence: CO)
  Receive Date: 20250318
  Receipt Date: 20250328
  Transmission Date: 20250408
  Serious: Yes (Death, Hospitalization)
  Sender: ABBVIE
  Company Number: CO-ABBVIE-6182014

PATIENT
  Age: 75 Year
  Sex: Female

DRUGS (2)
  1. VENETOCLAX [Suspect]
     Active Substance: VENETOCLAX
     Indication: Acute myeloid leukaemia
     Dosage: EVERY DAY (1 TO 28)
     Route: 048
     Dates: start: 20250215, end: 20250315
  2. AZACITIDINE [Suspect]
     Active Substance: AZACITIDINE
     Indication: Acute myeloid leukaemia
     Dosage: STRENGTH-75 MG/M2, DAYS 1 TO 7. THE 7 DAYS OF TREATMENT HAD ENDED. LAST ADMIN DATE-2025
     Route: 058
     Dates: start: 20250215

REACTIONS (2)
  - Febrile neutropenia [Fatal]
  - Bacillus bacteraemia [Fatal]

NARRATIVE: CASE EVENT DATE: 20250306
